FAERS Safety Report 21084838 (Version 2)
Quarter: 2022Q3

REPORT INFORMATION
  Report Type: Spontaneous
  Country: US (occurrence: US)
  Receive Date: 20220714
  Receipt Date: 20220729
  Transmission Date: 20221027
  Serious: Yes (Hospitalization)
  Sender: FDA-Public Use
  Company Number: US-TEVA-2022-US-2053901

PATIENT
  Age: 71 Year
  Sex: Female

DRUGS (3)
  1. FLUOXETINE [Suspect]
     Active Substance: FLUOXETINE HYDROCHLORIDE
     Indication: Enterovirus infection
     Dosage: 40 MILLIGRAM DAILY;
     Route: 065
  2. FLUOXETINE [Suspect]
     Active Substance: FLUOXETINE HYDROCHLORIDE
     Indication: Meningoencephalitis viral
  3. RITUXIMAB [Suspect]
     Active Substance: RITUXIMAB
     Indication: Rheumatoid arthritis
     Route: 050

REACTIONS (6)
  - Enterovirus infection [Recovering/Resolving]
  - Meningoencephalitis viral [Recovering/Resolving]
  - Hypogammaglobulinaemia [Unknown]
  - Drug ineffective [Unknown]
  - Hydrocephalus [Recovering/Resolving]
  - Spinal compression fracture [Unknown]
